FAERS Safety Report 16867256 (Version 1)
Quarter: 2019Q3

REPORT INFORMATION
  Report Type: Report from Study
  Country: US (occurrence: US)
  Receive Date: 20190930
  Receipt Date: 20190930
  Transmission Date: 20191005
  Serious: Yes (Hospitalization, Other)
  Sender: FDA-Public Use
  Company Number: US-GILEAD-2019-0430919

PATIENT
  Age: 75 Year
  Sex: Female

DRUGS (24)
  1. FEROSUL [Concomitant]
  2. HCTZ [Concomitant]
     Active Substance: HYDROCHLOROTHIAZIDE
  3. VERAPAMIL [Concomitant]
     Active Substance: VERAPAMIL HYDROCHLORIDE
  4. CHOLESTYRAMIN [Concomitant]
     Active Substance: CHOLESTYRAMINE
  5. FUROSEMIDE. [Concomitant]
     Active Substance: FUROSEMIDE
  6. HYDRALAZINE [Concomitant]
     Active Substance: HYDRALAZINE HYDROCHLORIDE
  7. METOLAZONE. [Concomitant]
     Active Substance: METOLAZONE
  8. OLANZAPINE. [Concomitant]
     Active Substance: OLANZAPINE
  9. OMEPRAZOLE. [Concomitant]
     Active Substance: OMEPRAZOLE
  10. VITAMIN D [VITAMIN D NOS] [Concomitant]
     Active Substance: VITAMIN D NOS
  11. ARNUITY ELLIPTA [Concomitant]
     Active Substance: FLUTICASONE FUROATE
  12. AMBRISENTAN [Suspect]
     Active Substance: AMBRISENTAN
     Indication: PULMONARY HYPERTENSION
     Dosage: 5 MG, QD
     Route: 065
     Dates: start: 20190731
  13. BUMETANIDE. [Concomitant]
     Active Substance: BUMETANIDE
  14. LEVOTHYROXINE. [Concomitant]
     Active Substance: LEVOTHYROXINE
  15. DIPHENOXYLATE/ATROPINE [Concomitant]
     Active Substance: ATROPINE\DIPHENOXYLATE
  16. ESOMEPRAZOLE. [Concomitant]
     Active Substance: ESOMEPRAZOLE MAGNESIUM
  17. MELOXICAM. [Concomitant]
     Active Substance: MELOXICAM
  18. OPIUM TINCTURE [Concomitant]
     Active Substance: MORPHINE
  19. BREO ELLIPTA [Concomitant]
     Active Substance: FLUTICASONE FUROATE\VILANTEROL TRIFENATATE
  20. CEPHALEXIN [CEFALEXIN] [Concomitant]
     Active Substance: CEPHALEXIN
  21. CEVIMELINE. [Concomitant]
     Active Substance: CEVIMELINE
  22. PROCRIT [Concomitant]
     Active Substance: ERYTHROPOIETIN
  23. ONDANSETRON [Concomitant]
     Active Substance: ONDANSETRON
  24. OXYCODONE/APAP [OXYCODONE HYDROCHLORIDE;PARACETAMOL] [Concomitant]

REACTIONS (2)
  - Thrombosis [Unknown]
  - Intestinal obstruction [Unknown]
